FAERS Safety Report 8176034-0 (Version None)
Quarter: 2012Q1

REPORT INFORMATION
  Report Type: 
  Country: None (occurrence: None)
  Receive Date: 20120301
  Receipt Date: 20120227
  Transmission Date: 20120608
  Serious: Yes (Other)
  Sender: FDA-Public Use
  Company Number: US-PFIZER INC-2012052168

PATIENT
  Age: 63 Year
  Sex: Female
  Weight: 86.2 kg

DRUGS (4)
  1. LISINOPRIL [Concomitant]
     Indication: BLOOD CHOLESTEROL INCREASED
     Dosage: 10 MG, 2X/DAY
     Route: 048
  2. PRAVASTATIN [Concomitant]
     Indication: BLOOD CHOLESTEROL INCREASED
     Dosage: 180 MG,DAILY
     Route: 048
  3. GABAPENTIN [Concomitant]
     Indication: NERVOUS SYSTEM DISORDER
     Dosage: 800 MG, 4X/DAY
  4. CELEBREX [Suspect]
     Indication: ARTHRITIS
     Dosage: UNK
     Route: 048

REACTIONS (2)
  - BODY HEIGHT DECREASED [None]
  - ARTHRITIS [None]
